FAERS Safety Report 7358932-0 (Version None)
Quarter: 2011Q1

REPORT INFORMATION
  Report Type: 
  Country: None (occurrence: None)
  Receive Date: 20110317
  Receipt Date: 20110316
  Transmission Date: 20110831
  Serious: Yes (Other)
  Sender: FDA-Public Use
  Company Number: CH-BRISTOL-MYERS SQUIBB COMPANY-15611767

PATIENT
  Sex: Female

DRUGS (2)
  1. ABILIFY [Suspect]
  2. EFFEXOR [Suspect]

REACTIONS (2)
  - CONFUSIONAL STATE [None]
  - EPILEPSY [None]
